FAERS Safety Report 24857789 (Version 2)
Quarter: 2025Q3

REPORT INFORMATION
  Report Type: Spontaneous
  Country: CN (occurrence: CN)
  Receive Date: 20250117
  Receipt Date: 20250809
  Transmission Date: 20251021
  Serious: Yes (Disabling)
  Sender: ALEXION PHARMACEUTICALS
  Company Number: CN-ASTRAZENECA-202501CHN013379CN

PATIENT
  Age: 44 Year
  Sex: Female

DRUGS (1)
  1. DAPAGLIFLOZIN [Suspect]
     Active Substance: DAPAGLIFLOZIN
     Indication: Diabetes mellitus
     Dosage: 10 MILLIGRAM, QD
     Dates: start: 20250104, end: 20250104

REACTIONS (1)
  - Blood ketone body increased [Recovering/Resolving]

NARRATIVE: CASE EVENT DATE: 20250104
